FAERS Safety Report 11596699 (Version 1)
Quarter: 2015Q4

REPORT INFORMATION
  Report Type: Spontaneous
  Country: US (occurrence: None)
  Receive Date: 20151005
  Receipt Date: 20151005
  Transmission Date: 20160304
  Serious: No
  Sender: FDA-Public Use
  Company Number: None

PATIENT
  Age: 66 Year
  Sex: Female
  Weight: 90.72 kg

DRUGS (4)
  1. METOPROLOL ER SUCCINATE [Concomitant]
     Active Substance: METOPROLOL SUCCINATE
  2. XARELTO [Suspect]
     Active Substance: RIVAROXABAN
     Dosage: 1 PILL
     Route: 048
  3. LOSARTAN 100/25 HCTZ [Concomitant]
  4. VITAMIN D3 [Concomitant]
     Active Substance: CHOLECALCIFEROL

REACTIONS (4)
  - Respiratory disorder [None]
  - Alopecia [None]
  - Upper-airway cough syndrome [None]
  - Nasopharyngitis [None]

NARRATIVE: CASE EVENT DATE: 20151003
